FAERS Safety Report 4705184-3 (Version None)
Quarter: 2005Q3

REPORT INFORMATION
  Report Type: 
  Country: None (occurrence: None)
  Receive Date: 20050701
  Receipt Date: 20050311
  Transmission Date: 20060218
  Serious: Yes (Other)
  Sender: FDA-Public Use
  Company Number: US-MERCK-0503USA02712

PATIENT
  Age: 63 Year
  Sex: Female
  Weight: 67 kg

DRUGS (6)
  1. VIOXX [Suspect]
     Indication: BONE PAIN
     Route: 048
     Dates: start: 20030106, end: 20030101
  2. DIOVAN [Concomitant]
     Indication: HYPERTENSION
     Route: 065
     Dates: start: 20020101
  3. TENORMIN [Concomitant]
     Route: 065
     Dates: start: 20020101, end: 20030408
  4. RESTORIL [Concomitant]
     Route: 065
  5. HYDRODIURIL [Concomitant]
     Route: 065
     Dates: start: 20030131
  6. LISINOPRIL [Concomitant]
     Route: 065

REACTIONS (10)
  - DEPRESSION [None]
  - DRUG ADMINISTRATION ERROR [None]
  - HYPERLIPIDAEMIA [None]
  - HYPERTENSION [None]
  - INSOMNIA [None]
  - ISCHAEMIC CEREBRAL INFARCTION [None]
  - LOBAR PNEUMONIA [None]
  - PALPITATIONS [None]
  - ROTATOR CUFF SYNDROME [None]
  - SACROILIITIS [None]
